FAERS Safety Report 9097643 (Version 1)
Quarter: 2013Q1

REPORT INFORMATION
  Report Type: Spontaneous
  Country: US (occurrence: US)
  Receive Date: 20130212
  Receipt Date: 20130212
  Transmission Date: 20140127
  Serious: Yes (Hospitalization)
  Sender: FDA-Public Use
  Company Number: US-JNJFOC-20130200620

PATIENT
  Sex: Female
  Weight: 68.95 kg

DRUGS (13)
  1. XARELTO [Suspect]
     Indication: PULMONARY THROMBOSIS
     Route: 048
     Dates: start: 20121207, end: 20121230
  2. XARELTO [Suspect]
     Indication: THROMBOSIS
     Route: 048
     Dates: start: 20121207, end: 20121230
  3. PROTONIX [Concomitant]
     Indication: DYSPEPSIA
     Route: 048
     Dates: start: 2009
  4. PROTONIX [Concomitant]
     Indication: GASTRIC DISORDER
     Route: 048
     Dates: start: 2009
  5. KLOR-CON [Concomitant]
     Indication: BLOOD POTASSIUM
     Route: 048
  6. FUROSEMIDE [Concomitant]
     Route: 048
  7. FUROSEMIDE [Concomitant]
     Route: 048
  8. ASPIRIN [Concomitant]
     Route: 048
  9. LIPITOR [Concomitant]
     Route: 048
  10. LISINOPRIL [Concomitant]
     Route: 048
  11. ASACOL [Concomitant]
     Route: 048
  12. NORETHINDRONE [Concomitant]
     Route: 048
     Dates: end: 20121214
  13. ESTRACE [Concomitant]
     Route: 048
     Dates: end: 20121214

REACTIONS (4)
  - Arthralgia [Not Recovered/Not Resolved]
  - Pruritus [Unknown]
  - Pain in extremity [Not Recovered/Not Resolved]
  - Rash [Unknown]
